FAERS Safety Report 7328164-0 (Version None)
Quarter: 2011Q1

REPORT INFORMATION
  Report Type: 
  Country: None (occurrence: None)
  Receive Date: 20110224
  Receipt Date: 20110224
  Transmission Date: 20110831
  Serious: Yes (Other)
  Sender: FDA-Public Use
  Company Number: None

PATIENT
  Age: 33 Year
  Sex: Female
  Weight: 74.3899 kg

DRUGS (2)
  1. ZANAFLEX [Suspect]
     Indication: MULTIPLE SCLEROSIS
     Dosage: ORAL, ONE TABLET EVERY 4 HRS PRN AS NEEDED
     Route: 048
  2. COPAXONE [Concomitant]

REACTIONS (2)
  - RASH [None]
  - PRODUCT SUBSTITUTION ISSUE [None]
